FAERS Safety Report 20701775 (Version 1)
Quarter: 2022Q2

REPORT INFORMATION
  Report Type: Spontaneous
  Country: US (occurrence: US)
  Receive Date: 20220412
  Receipt Date: 20220412
  Transmission Date: 20220720
  Serious: Yes (Other)
  Sender: FDA-Public Use
  Company Number: ENDG21-05857

PATIENT
  Sex: Male

DRUGS (9)
  1. KETALAR [Suspect]
     Active Substance: KETAMINE HYDROCHLORIDE
     Indication: Product used for unknown indication
     Dosage: UNK UNKNOWN, UNKNOWN
     Route: 065
     Dates: end: 20210903
  2. KETALAR [Suspect]
     Active Substance: KETAMINE HYDROCHLORIDE
     Dosage: UNK UNKNOWN, UNKNOWN (DECREASED BY 25 %)
     Route: 065
     Dates: start: 20210903, end: 20210907
  3. DINUTUXIMAB [Suspect]
     Active Substance: DINUTUXIMAB
     Indication: Product used for unknown indication
     Dosage: UNK, UNKNOWN, CYCLICAL (CYCLE FOUR)
     Route: 041
     Dates: end: 20210903
  4. MORPHINE [Suspect]
     Active Substance: MORPHINE
     Indication: Product used for unknown indication
     Dosage: UNK UNKNOWN, UNKNOWN
     Route: 065
     Dates: end: 20210903
  5. MORPHINE [Suspect]
     Active Substance: MORPHINE
     Dosage: UNK UNKNOWN, UNKNOWN (DOSE DECREASED BY 25 %)
     Route: 065
     Dates: start: 20210903
  6. DILAUDID [Suspect]
     Active Substance: HYDROMORPHONE HYDROCHLORIDE
     Indication: Product used for unknown indication
     Dosage: UNK UNKNOWN, UNKNOWN
     Route: 065
  7. DILAUDID [Suspect]
     Active Substance: HYDROMORPHONE HYDROCHLORIDE
     Dosage: UNK UNKNOWN, UNKNOWN (DECREASED BY 25 %)
     Route: 065
  8. BENADRYL [Suspect]
     Active Substance: DIPHENHYDRAMINE HYDROCHLORIDE
     Indication: Product used for unknown indication
     Dosage: UNK UNKNOWN, UNKNOWN
     Route: 065
  9. BENADRYL [Suspect]
     Active Substance: DIPHENHYDRAMINE HYDROCHLORIDE
     Dosage: UNK UNKNOWN, UNKNOWN (DECREASED BY 25 %)
     Route: 065

REACTIONS (1)
  - Hallucination [Recovering/Resolving]

NARRATIVE: CASE EVENT DATE: 20210902
